FAERS Safety Report 9446489 (Version 1)
Quarter: 2013Q3

REPORT INFORMATION
  Report Type: Spontaneous
  Country: US (occurrence: US)
  Receive Date: 20130807
  Receipt Date: 20130807
  Transmission Date: 20140515
  Serious: No
  Sender: FDA-Public Use
  Company Number: US-AMGEN-USASP2013050254

PATIENT
  Sex: 0

DRUGS (3)
  1. ENBREL [Suspect]
     Indication: PRODUCT USED FOR UNKNOWN INDICATION
     Dosage: UNK
     Route: 065
  2. MTX                                /00113801/ [Concomitant]
     Dosage: 0.1 AS REQUIRED
  3. SIMPONI [Concomitant]
     Dosage: UNK

REACTIONS (9)
  - Drug ineffective [Unknown]
  - Pain [Unknown]
  - Local swelling [Unknown]
  - Injection site reaction [Unknown]
  - Injection site swelling [Unknown]
  - Injection site induration [Unknown]
  - Injection site warmth [Unknown]
  - Injection site pain [Unknown]
  - Psoriasis [Unknown]
